FAERS Safety Report 13755631 (Version 1)
Quarter: 2017Q3

REPORT INFORMATION
  Report Type: Spontaneous
  Country: US (occurrence: US)
  Receive Date: 20170714
  Receipt Date: 20170714
  Transmission Date: 20171127
  Serious: Yes (Disabling)
  Sender: FDA-Public Use
  Company Number: None

PATIENT
  Age: 36 Year
  Sex: Female
  Weight: 80.55 kg

DRUGS (3)
  1. KLONOPIN [Concomitant]
     Active Substance: CLONAZEPAM
  2. CLONAZEPAM .5MG TABLET UNKNOWN [Suspect]
     Active Substance: CLONAZEPAM
     Indication: ANXIETY
     Dosage: ?          OTHER STRENGTH:MG;QUANTITY:2 TABLET(S);?TWICE A DAY
     Route: 048
     Dates: start: 20070601, end: 20170714
  3. CLONAZEPAM .5MG TABLET UNKNOWN [Suspect]
     Active Substance: CLONAZEPAM
     Indication: GRIEF REACTION
     Dosage: ?          OTHER STRENGTH:MG;QUANTITY:2 TABLET(S);?TWICE A DAY
     Route: 048
     Dates: start: 20070601, end: 20170714

REACTIONS (10)
  - Loss of personal independence in daily activities [None]
  - Panic reaction [None]
  - Hallucination [None]
  - Crying [None]
  - Depersonalisation/derealisation disorder [None]
  - Insomnia [None]
  - Cognitive disorder [None]
  - Derealisation [None]
  - Anxiety [None]
  - Drug withdrawal syndrome [None]

NARRATIVE: CASE EVENT DATE: 20170105
